FAERS Safety Report 4850760-0 (Version None)
Quarter: 2005Q4

REPORT INFORMATION
  Report Type: 
  Country: None (occurrence: None)
  Receive Date: 20051208
  Receipt Date: 20051129
  Transmission Date: 20060501
  Serious: Yes (Hospitalization, Other)
  Sender: FDA-Public Use
  Company Number: 2005-09-1714

PATIENT
  Age: 73 Year
  Sex: Male

DRUGS (4)
  1. INTRON A [Suspect]
     Indication: METASTATIC RENAL CELL CARCINOMA
     Dosage: 11 MIU QD SUBCUTANEOUS
     Route: 058
     Dates: start: 20050302, end: 20050404
  2. ASPIRIN [Concomitant]
  3. NITROGLYCERIN [Concomitant]
  4. INTERLEUKIN-2    INJECTABLE SOLUTION [Concomitant]

REACTIONS (10)
  - ASTHENIA [None]
  - CEREBRAL ATROPHY [None]
  - CEREBRAL INFARCTION [None]
  - CEREBROVASCULAR DISORDER [None]
  - CHEST PAIN [None]
  - DYSURIA [None]
  - FALL [None]
  - GAIT DISTURBANCE [None]
  - HYPOTENSION [None]
  - URINARY RETENTION [None]
